FAERS Safety Report 8803155 (Version 1)
Quarter: 2012Q4

REPORT INFORMATION
  Report Type: Report from Study
  Country: CA (occurrence: CA)
  Receive Date: 20120924
  Receipt Date: 20120924
  Transmission Date: 20130627
  Serious: Yes (Hospitalization)
  Sender: FDA-Public Use
  Company Number: CA-JNJFOC-20120906339

PATIENT
  Sex: Female
  Weight: 111.6 kg

DRUGS (10)
  1. REMICADE [Suspect]
     Indication: PSORIATIC ARTHROPATHY
     Dosage: 8th infusion
     Route: 042
     Dates: start: 20120912
  2. REMICADE [Suspect]
     Indication: PSORIATIC ARTHROPATHY
     Route: 042
     Dates: start: 20111025
  3. ANTI-INFLAMMATORY MEDICATIONS [Suspect]
     Indication: PRODUCT USED FOR UNKNOWN INDICATION
     Route: 065
  4. METHOTREXATE [Concomitant]
     Indication: ARTHRITIS
     Route: 058
  5. MORPHINE [Concomitant]
     Indication: PAIN
     Route: 048
  6. NAPROXEN [Concomitant]
     Indication: ANTIINFLAMMATORY THERAPY
     Route: 065
  7. BUPROPION [Concomitant]
     Indication: ANTIDEPRESSANT THERAPY
     Route: 048
  8. BUPROPION [Concomitant]
     Indication: ANXIETY
     Route: 048
  9. RANITIDINE [Concomitant]
     Indication: GASTRIC ULCER
     Route: 048
  10. METFORMIN [Concomitant]
     Indication: POLYCYSTIC OVARIES
     Route: 048

REACTIONS (1)
  - Gastric ulcer perforation [Recovering/Resolving]
